FAERS Safety Report 13080035 (Version 2)
Quarter: 2018Q1

REPORT INFORMATION
  Report Type: Spontaneous
  Country: US (occurrence: US)
  Receive Date: 20170103
  Receipt Date: 20180201
  Transmission Date: 20180508
  Serious: No
  Sender: FDA-Public Use
  Company Number: US-LUNDBECK-DKLU2020077

PATIENT
  Age: 66 Year
  Sex: Female

DRUGS (1)
  1. NORTHERA [Suspect]
     Active Substance: DROXIDOPA
     Indication: PRODUCT USED FOR UNKNOWN INDICATION
     Dosage: SCHEDULE C AND TITRATING
     Route: 065
     Dates: start: 20160818

REACTIONS (19)
  - Retching [Unknown]
  - Myalgia [Unknown]
  - Influenza like illness [Unknown]
  - Auditory disorder [Unknown]
  - Dyspnoea [Unknown]
  - Fatigue [Unknown]
  - Hypertension [Unknown]
  - Hypotension [Unknown]
  - Chest pain [Unknown]
  - Presyncope [Unknown]
  - Sinusitis [Unknown]
  - Visual impairment [Unknown]
  - Obstructive airways disorder [Unknown]
  - Dizziness postural [Unknown]
  - Feeling abnormal [Unknown]
  - Headache [Unknown]
  - Diarrhoea [Unknown]
  - Nausea [Unknown]
  - Dizziness [Unknown]

NARRATIVE: CASE EVENT DATE: 201704
